FAERS Safety Report 20203148 (Version 1)
Quarter: 2021Q4

REPORT INFORMATION
  Report Type: Spontaneous
  Country: DE (occurrence: DE)
  Receive Date: 20211218
  Receipt Date: 20211218
  Transmission Date: 20220303
  Serious: Yes (Death)
  Sender: FDA-Public Use
  Company Number: DE-drreddys-LIT/GER/21/0144847

PATIENT
  Age: 54 Year
  Sex: Male

DRUGS (3)
  1. FONDAPARINUX [Suspect]
     Active Substance: FONDAPARINUX
     Indication: Anticoagulant therapy
     Route: 058
  2. FONDAPARINUX [Suspect]
     Active Substance: FONDAPARINUX
     Route: 058
  3. Immune-globulin [Concomitant]
     Indication: Product used for unknown indication

REACTIONS (1)
  - Haemorrhage intracranial [Fatal]
